FAERS Safety Report 7708764-6 (Version None)
Quarter: 2011Q3

REPORT INFORMATION
  Report Type: 
  Country: None (occurrence: None)
  Receive Date: 20110825
  Receipt Date: 20110825
  Transmission Date: 20111222
  Serious: Yes (Hospitalization, Other)
  Sender: FDA-Public Use
  Company Number: None

PATIENT
  Age: 78 Year
  Sex: Female
  Weight: 94.4 kg

DRUGS (9)
  1. LISINOPRIL [Concomitant]
  2. ADVAIR INHL. [Concomitant]
  3. BACLOFEN [Concomitant]
  4. SERTRALINE HYDROCHLORIDE [Concomitant]
  5. FAMOTIDINE [Concomitant]
  6. MONTELUKAST SODIUM [Concomitant]
  7. WARFARIN SODIUM [Concomitant]
  8. MULTAQ [Suspect]
     Indication: ATRIAL FIBRILLATION
     Dosage: 200 MG
     Route: 048
  9. NEBIVOLOL HCL [Concomitant]

REACTIONS (9)
  - PYREXIA [None]
  - ALVEOLITIS ALLERGIC [None]
  - WHITE BLOOD CELL COUNT INCREASED [None]
  - RESPIRATORY RATE INCREASED [None]
  - PRODUCTIVE COUGH [None]
  - OXYGEN SATURATION DECREASED [None]
  - SYSTEMIC INFLAMMATORY RESPONSE SYNDROME [None]
  - PO2 DECREASED [None]
  - DYSPNOEA [None]
